FAERS Safety Report 5029240-8 (Version None)
Quarter: 2006Q2

REPORT INFORMATION
  Report Type: 
  Country: None (occurrence: None)
  Receive Date: 20060613
  Receipt Date: 20060526
  Transmission Date: 20061013
  Serious: Yes (Hospitalization, Disabling, Other)
  Sender: FDA-Public Use
  Company Number: 01/08182-USE

PATIENT
  Age: 62 Year
  Sex: Male

DRUGS (3)
  1. BETASERON [Suspect]
     Indication: PROGRESSIVE MULTIPLE SCLEROSIS
     Dosage: SEE IMAGE
     Route: 058
     Dates: start: 19940502, end: 19970701
  2. BETASERON [Suspect]
     Indication: PROGRESSIVE MULTIPLE SCLEROSIS
     Dosage: SEE IMAGE
     Route: 058
     Dates: start: 19971101, end: 20000301
  3. BETASERON [Suspect]
     Indication: PROGRESSIVE MULTIPLE SCLEROSIS
     Dosage: SEE IMAGE
     Route: 058
     Dates: start: 20000701, end: 20020502

REACTIONS (16)
  - ABDOMINAL STRANGULATED HERNIA [None]
  - ACCIDENT [None]
  - BENIGN PROSTATIC HYPERPLASIA [None]
  - CONFUSIONAL STATE [None]
  - CONSTIPATION [None]
  - CORONARY ARTERY OCCLUSION [None]
  - GANGRENE [None]
  - LEG AMPUTATION [None]
  - NECROSIS [None]
  - POOR PERIPHERAL CIRCULATION [None]
  - PROSTATE EXAMINATION ABNORMAL [None]
  - REFUSAL OF TREATMENT BY PATIENT [None]
  - SKIN GRAFT [None]
  - THROMBOSIS IN DEVICE [None]
  - VENOUS THROMBOSIS LIMB [None]
  - WOUND DEBRIDEMENT [None]
